FAERS Safety Report 23825074 (Version 3)
Quarter: 2024Q2

REPORT INFORMATION
  Report Type: Spontaneous
  Country: US (occurrence: US)
  Receive Date: 20240507
  Receipt Date: 20240610
  Transmission Date: 20240715
  Serious: No
  Sender: FDA-Public Use
  Company Number: US-PFIZER INC-202400098877

PATIENT
  Age: 7 Year
  Sex: Female
  Weight: 21.769 kg

DRUGS (2)
  1. GENOTROPIN [Suspect]
     Active Substance: SOMATROPIN
     Indication: Growth hormone deficiency
     Dosage: 1.1
  2. SYMBICORT [Concomitant]
     Active Substance: BUDESONIDE\FORMOTEROL FUMARATE DIHYDRATE
     Indication: Asthma
     Dosage: SHE TAKES 2 PUFF A DAY I DO NOT WHAT ITS MEAN IT IS 160/4.5

REACTIONS (5)
  - Device use issue [Unknown]
  - Device information output issue [Unknown]
  - Device breakage [Unknown]
  - Poor quality device used [Unknown]
  - Drug dose omission by device [Unknown]
